FAERS Safety Report 14414009 (Version 14)
Quarter: 2022Q3

REPORT INFORMATION
  Report Type: Spontaneous
  Country: GB (occurrence: GB)
  Receive Date: 20180119
  Receipt Date: 20220921
  Transmission Date: 20221026
  Serious: Yes (Other)
  Sender: FDA-Public Use
  Company Number: GB-JNJFOC-20180113390

PATIENT
  Sex: Female

DRUGS (3)
  1. CETIRIZINE HYDROCHLORIDE [Suspect]
     Active Substance: CETIRIZINE HYDROCHLORIDE
     Indication: Hypersensitivity
     Route: 065
  2. MIRABEGRON [Interacting]
     Active Substance: MIRABEGRON
     Indication: Hypertonic bladder
     Dosage: STARTED ON 12/DEC/2017.
     Route: 065
     Dates: end: 20171229
  3. MIRABEGRON [Interacting]
     Active Substance: MIRABEGRON
     Route: 065

REACTIONS (6)
  - Drug interaction [Unknown]
  - Blood pressure decreased [Recovered/Resolved]
  - Insomnia [Recovering/Resolving]
  - Dizziness [Unknown]
  - Malaise [Unknown]
  - Illness [Unknown]

NARRATIVE: CASE EVENT DATE: 20171201
